FAERS Safety Report 8674613 (Version 2)
Quarter: 2012Q4

REPORT INFORMATION
  Report Type: 
  Country: CA (occurrence: CA)
  Receive Date: 20120720
  Receipt Date: 20121005
  Transmission Date: 20130627
  Serious: Yes (Hospitalization)
  Sender: FDA-Public Use
  Company Number: CA-SP-2012-06870

PATIENT
  Age: 21 Year
  Sex: Female

DRUGS (3)
  1. TUBERSOL [Suspect]
     Indication: TUBERCULIN TEST
     Route: 065
  2. MACROBID [Concomitant]
     Indication: URINARY TRACT INFECTION
     Dosage: Not reported
  3. MDMA [Concomitant]
     Indication: SUBSTANCE USE
     Dosage: Recreational use

REACTIONS (7)
  - Encephalitis [Recovered/Resolved]
  - Encephalitis [Recovered/Resolved]
  - Dysarthria [Recovered/Resolved]
  - Vision blurred [Recovered/Resolved]
  - Headache [Recovered/Resolved]
  - Vomiting [Recovered/Resolved]
  - Dizziness [Recovered/Resolved]
